FAERS Safety Report 25262820 (Version 1)
Quarter: 2025Q2

REPORT INFORMATION
  Report Type: Spontaneous
  Country: IN (occurrence: IN)
  Receive Date: 20250502
  Receipt Date: 20250502
  Transmission Date: 20250717
  Serious: Yes (Life-Threatening)
  Sender: ALKEM
  Company Number: IN-ALKEM LABORATORIES LIMITED-IN-ALKEM-2025-01582

PATIENT

DRUGS (1)
  1. CARBAMAZEPINE [Suspect]
     Active Substance: CARBAMAZEPINE
     Indication: Product used for unknown indication
     Route: 048

REACTIONS (2)
  - Toxicity to various agents [Recovering/Resolving]
  - Overdose [Unknown]
